FAERS Safety Report 8102480-7 (Version None)
Quarter: 2012Q1

REPORT INFORMATION
  Report Type: 
  Country: None (occurrence: None)
  Receive Date: 20120201
  Receipt Date: 20120126
  Transmission Date: 20120608
  Serious: Yes (Life-Threatening, Hospitalization, Other)
  Sender: FDA-Public Use
  Company Number: FR-ELI_LILLY_AND_COMPANY-FR201201007916

PATIENT
  Age: 31 Year
  Sex: Male

DRUGS (6)
  1. CLONAZEPAM [Concomitant]
  2. ZYPREXA [Suspect]
     Dosage: 20 MG, QD
     Route: 048
     Dates: start: 20111022
  3. ACETAMINOPHEN [Concomitant]
     Dosage: 500 MG, UNK
     Route: 048
  4. PERINDOPRIL ERBUMINE [Concomitant]
  5. LOXAPAC                            /00401801/ [Concomitant]
     Indication: PSYCHOTIC DISORDER
     Dosage: UNK
     Route: 048
     Dates: start: 20111021
  6. LEPTICUR [Concomitant]
     Dosage: 10 MG, UNK
     Route: 048

REACTIONS (5)
  - COMA SCALE ABNORMAL [None]
  - URINARY RETENTION [None]
  - STATUS EPILEPTICUS [None]
  - POLYURIA [None]
  - HYPOTHERMIA [None]
